FAERS Safety Report 25324794 (Version 3)
Quarter: 2025Q2

REPORT INFORMATION
  Report Type: Spontaneous
  Country: US (occurrence: US)
  Receive Date: 20250516
  Receipt Date: 20250522
  Transmission Date: 20250717
  Serious: Yes (Death, Hospitalization)
  Sender: NOVARTIS
  Company Number: US-002147023-NVSC2025US079029

PATIENT
  Sex: Male
  Weight: 107 kg

DRUGS (1)
  1. PLUVICTO [Suspect]
     Active Substance: LUTETIUM LU-177 VIPIVOTIDE TETRAXETAN
     Indication: Prostate cancer
     Route: 042
     Dates: start: 20241028, end: 20250121

REACTIONS (4)
  - Death [Fatal]
  - General physical health deterioration [Unknown]
  - Fracture [Unknown]
  - Pain [Unknown]
